FAERS Safety Report 7479637-1 (Version None)
Quarter: 2011Q2

REPORT INFORMATION
  Report Type: 
  Country: None (occurrence: None)
  Receive Date: 20110513
  Receipt Date: 20110505
  Transmission Date: 20111010
  Serious: Yes (Other)
  Sender: FDA-Public Use
  Company Number: PHHY2009DE67412

PATIENT
  Sex: Female

DRUGS (2)
  1. ACETAMINOPHEN [Concomitant]
  2. EXTAVIA [Suspect]
     Route: 058
     Dates: start: 20090525

REACTIONS (8)
  - INJECTION SITE ERYTHEMA [None]
  - INJECTION SITE PAIN [None]
  - INJECTION SITE IRRITATION [None]
  - UTERINE CYST [None]
  - INFLUENZA LIKE ILLNESS [None]
  - FATIGUE [None]
  - ASTHENIA [None]
  - INJECTION SITE HAEMATOMA [None]
